FAERS Safety Report 23649261 (Version 3)
Quarter: 2024Q2

REPORT INFORMATION
  Report Type: Spontaneous
  Country: JP (occurrence: JP)
  Receive Date: 20240319
  Receipt Date: 20240417
  Transmission Date: 20240716
  Serious: No
  Sender: FDA-Public Use
  Company Number: JP-ORGANON-O2403JPN001768

PATIENT
  Age: 10 Year
  Sex: Female

DRUGS (4)
  1. MONTELUKAST SODIUM [Suspect]
     Active Substance: MONTELUKAST SODIUM
     Indication: Dermatitis atopic
     Dosage: 10 MILLIGRAM, QD
     Route: 048
     Dates: start: 202204, end: 20221120
  2. DESLORATADINE [Suspect]
     Active Substance: DESLORATADINE
     Indication: Alopecia areata
     Dosage: 5 MILLIGRAM, QD
     Route: 048
     Dates: start: 202204, end: 20221120
  3. DESLORATADINE [Suspect]
     Active Substance: DESLORATADINE
     Indication: Dermatitis atopic
  4. ALESION [Suspect]
     Active Substance: EPINASTINE HYDROCHLORIDE
     Indication: Dermatitis atopic
     Dosage: 1.4 GRAM, QD
     Route: 048
     Dates: start: 20200402, end: 202103

REACTIONS (3)
  - Alopecia areata [Not Recovered/Not Resolved]
  - Off label use [Unknown]
  - Off label use [Unknown]

NARRATIVE: CASE EVENT DATE: 20220401
